FAERS Safety Report 25347344 (Version 1)
Quarter: 2025Q2

REPORT INFORMATION
  Report Type: Spontaneous
  Country: US (occurrence: US)
  Receive Date: 20250522
  Receipt Date: 20250522
  Transmission Date: 20250717
  Serious: No
  Sender: BAYER HEALTHCARE PHARMACEUTICALS INC.
  Company Number: US-BAYER-2025A066977

PATIENT
  Age: 61 Year
  Sex: Male

DRUGS (2)
  1. NUBEQA [Suspect]
     Active Substance: DAROLUTAMIDE
     Indication: Product used for unknown indication
     Dates: start: 202503
  2. ORGOVYX [Suspect]
     Active Substance: RELUGOLIX
     Indication: Prostate cancer
     Dosage: 120 MG, QD
     Route: 048
     Dates: start: 202503

REACTIONS (6)
  - Sleep deficit [Unknown]
  - Muscle fatigue [Unknown]
  - Fatigue [Unknown]
  - Hot flush [Recovering/Resolving]
  - Product dose omission in error [None]
  - Incorrect dose administered [None]

NARRATIVE: CASE EVENT DATE: 20250101
